FAERS Safety Report 9710795 (Version 1)
Quarter: 2013Q4

REPORT INFORMATION
  Report Type: Spontaneous
  Country: None (occurrence: US)
  Receive Date: 20131126
  Receipt Date: 20131126
  Transmission Date: 20140711
  Serious: No
  Sender: FDA-Public Use
  Company Number: US-BRISTOL-MYERS SQUIBB COMPANY-19006139

PATIENT
  Sex: 0

DRUGS (1)
  1. BYETTA PEN DISPOSABLE [Suspect]
     Dosage: LOT NUMBER: BOX C031056A  JUL 2014
     Dates: start: 201301

REACTIONS (2)
  - Nausea [Unknown]
  - Expired drug administered [Unknown]
